FAERS Safety Report 6898332-0 (Version None)
Quarter: 2010Q3

REPORT INFORMATION
  Report Type: 
  Country: None (occurrence: None)
  Receive Date: 20100802
  Receipt Date: 20071011
  Transmission Date: 20110219
  Serious: No
  Sender: FDA-Public Use
  Company Number: US-PFIZER INC-2007086978

PATIENT
  Sex: Female
  Weight: 57.7 kg

DRUGS (9)
  1. LYRICA [Suspect]
     Indication: NEURALGIA
     Dates: start: 20070801, end: 20070801
  2. NEURONTIN [Suspect]
     Indication: NEURALGIA
     Dates: start: 20070823
  3. LEVOTHYROXINE SODIUM [Concomitant]
  4. PEPCID [Concomitant]
  5. ALLEGRA [Concomitant]
  6. TYLENOL [Concomitant]
  7. ZYRTEC [Concomitant]
  8. VITAMIN B [Concomitant]
  9. CYMBALTA [Concomitant]

REACTIONS (7)
  - COORDINATION ABNORMAL [None]
  - DISORIENTATION [None]
  - HEADACHE [None]
  - IRRITABILITY [None]
  - MOOD ALTERED [None]
  - THINKING ABNORMAL [None]
  - VISION BLURRED [None]
